FAERS Safety Report 5891789-3 (Version None)
Quarter: 2008Q3

REPORT INFORMATION
  Report Type: 
  Country: None (occurrence: None)
  Receive Date: 20080922
  Receipt Date: 20080909
  Transmission Date: 20090109
  Serious: Yes (Hospitalization, Other)
  Sender: FDA-Public Use
  Company Number: US-ELI_LILLY_AND_COMPANY-US200603000963

PATIENT
  Sex: Male
  Weight: 140.59 kg

DRUGS (4)
  1. ZYPREXA [Suspect]
     Indication: BIPOLAR DISORDER
     Dates: start: 19970815
  2. ZYPREXA [Suspect]
     Dosage: 5 MG, EACH EVENING
     Dates: start: 20040401, end: 20041227
  3. KLONOPIN [Concomitant]
     Dates: start: 19970101
  4. MILONTIN [Concomitant]
     Dates: start: 19970101

REACTIONS (5)
  - DIABETES MELLITUS [None]
  - LOCALISED INFECTION [None]
  - METABOLIC DISORDER [None]
  - NEUROPATHY PERIPHERAL [None]
  - WEIGHT INCREASED [None]
